FAERS Safety Report 6573363-9 (Version None)
Quarter: 2010Q1

REPORT INFORMATION
  Report Type: 
  Country: None (occurrence: None)
  Receive Date: 20100204
  Receipt Date: 20100204
  Transmission Date: 20100710
  Serious: Yes (Hospitalization)
  Sender: FDA-Public Use
  Company Number: None

PATIENT
  Sex: Male
  Weight: 103.8 kg

DRUGS (15)
  1. DECITABINE 50 MG VIALS/PHARMACHEMIE D.V. FOR EISAI, INC. [Suspect]
     Indication: ACUTE MYELOID LEUKAEMIA
     Dosage: 48 MG IV FOR 5 DAYS
     Route: 042
     Dates: start: 20091222, end: 20091226
  2. RAPAMYCIN 2 MG TABS/WYETH [Suspect]
     Indication: ACUTE MYELOID LEUKAEMIA
     Dosage: 2 MG PO 23 DAYS
     Route: 048
     Dates: start: 20091227, end: 20100115
  3. INSULIN [Concomitant]
  4. ARIMIDEX [Concomitant]
  5. COLACE [Concomitant]
  6. CRESTOR [Concomitant]
  7. ALLOPURINOL [Concomitant]
  8. FLUCONAZOLE [Concomitant]
  9. LOPRESSOR [Concomitant]
  10. NEXIUM [Concomitant]
  11. MAG. GLUCONATE [Concomitant]
  12. TRICOR [Concomitant]
  13. TYLENOL-500 [Concomitant]
  14. LOPERAMIDE [Concomitant]
  15. PROMETHAZINE [Concomitant]

REACTIONS (4)
  - BLOOD CULTURE POSITIVE [None]
  - CONFUSIONAL STATE [None]
  - FEBRILE NEUTROPENIA [None]
  - STAPHYLOCOCCAL INFECTION [None]
